FAERS Safety Report 7556461-2 (Version None)
Quarter: 2011Q2

REPORT INFORMATION
  Report Type: 
  Country: None (occurrence: None)
  Receive Date: 20110615
  Receipt Date: 20110615
  Transmission Date: 20111010
  Serious: Yes (Other)
  Sender: FDA-Public Use
  Company Number: None

PATIENT
  Sex: Female
  Weight: 114.3065 kg

DRUGS (1)
  1. ENBREL [Suspect]
     Indication: ANKYLOSING SPONDYLITIS
     Dosage: 50 MG WEEKLY SQ
     Route: 058
     Dates: start: 20110418, end: 20110508

REACTIONS (2)
  - DERMATITIS BULLOUS [None]
  - MOUTH ULCERATION [None]
